FAERS Safety Report 9880454 (Version 1)
Quarter: 2014Q1

REPORT INFORMATION
  Report Type: Spontaneous
  Country: US (occurrence: None)
  Receive Date: 20140206
  Receipt Date: 20140206
  Transmission Date: 20141002
  Serious: Yes (Life-Threatening)
  Sender: FDA-Public Use
  Company Number: None

PATIENT
  Age: 34 Year
  Sex: Female
  Weight: 71.22 kg

DRUGS (1)
  1. DULERA [Suspect]
     Route: 048

REACTIONS (4)
  - Foreign body [None]
  - Pharyngeal haemorrhage [None]
  - Product label issue [None]
  - Device physical property issue [None]
